FAERS Safety Report 24325883 (Version 1)
Quarter: 2024Q3

REPORT INFORMATION
  Report Type: Spontaneous
  Country: SI (occurrence: SI)
  Receive Date: 20240917
  Receipt Date: 20240917
  Transmission Date: 20241016
  Serious: Yes (Other)
  Sender: BRISTOL MYERS SQUIBB
  Company Number: SI-BRISTOL-MYERS SQUIBB COMPANY-2024-145503

PATIENT
  Age: 58 Year
  Sex: Male

DRUGS (3)
  1. OPDIVO [Suspect]
     Active Substance: NIVOLUMAB
     Indication: Metastatic malignant melanoma
     Dosage: 4 DOSES
  2. OPDIVO [Suspect]
     Active Substance: NIVOLUMAB
  3. YERVOY [Suspect]
     Active Substance: IPILIMUMAB
     Indication: Metastatic malignant melanoma
     Dosage: 4 DOSES

REACTIONS (9)
  - Rash [Recovered/Resolved]
  - Fatigue [Recovered/Resolved]
  - Immune-mediated enterocolitis [Recovered/Resolved]
  - Immune-mediated thyroiditis [Recovered/Resolved]
  - Immune-mediated lung disease [Recovered/Resolved]
  - Lymphadenopathy [Recovering/Resolving]
  - Achromotrichia acquired [Not Recovered/Not Resolved]
  - Malignant neoplasm progression [Recovered/Resolved]
  - Necrosis [Unknown]

NARRATIVE: CASE EVENT DATE: 20220801
